FAERS Safety Report 8481582-X (Version None)
Quarter: 2012Q2

REPORT INFORMATION
  Report Type: 
  Country: None (occurrence: None)
  Receive Date: 20120615
  Receipt Date: 20120613
  Transmission Date: 20120825
  Serious: Yes (Hospitalization, Other)
  Sender: FDA-Public Use
  Company Number: 2011SP051007

PATIENT
  Age: 62 Year
  Sex: Male

DRUGS (2)
  1. PEGINTERFERON ALFA-2B [Suspect]
     Indication: HEPATITIS C
     Dates: end: 20120401
  2. PEGINTERFERON ALFA-2B [Suspect]
     Indication: HEPATITIS C
     Dates: start: 20110728, end: 20120222

REACTIONS (13)
  - FATIGUE [None]
  - PURULENCE [None]
  - DECREASED APPETITE [None]
  - ABSCESS [None]
  - INJECTION SITE ABSCESS [None]
  - CELLULITIS [None]
  - DIABETES MELLITUS [None]
  - SLEEP DISORDER [None]
  - ABDOMINAL PAIN [None]
  - MALAISE [None]
  - CONDITION AGGRAVATED [None]
  - DRUG INEFFECTIVE [None]
  - INJECTION SITE CELLULITIS [None]
